FAERS Safety Report 7798997-5 (Version None)
Quarter: 2011Q4

REPORT INFORMATION
  Report Type: 
  Country: None (occurrence: None)
  Receive Date: 20111005
  Receipt Date: 20111005
  Transmission Date: 20120403
  Serious: Yes (Hospitalization)
  Sender: FDA-Public Use
  Company Number: None

PATIENT
  Sex: Male
  Weight: 91.85 kg

DRUGS (11)
  1. CYTARABINE [Suspect]
     Dosage: 4080 MG
  2. ETOPOSIDE [Suspect]
     Dosage: 324 MG
  3. LEUCOVORIN CALCIUM [Suspect]
     Dosage: 111 MG
  4. METHOTREXATE [Suspect]
     Dosage: 3075 MG
  5. DOXORUBICIN HCL [Suspect]
     Dosage: 102 MG
  6. DEXAMETHASONE [Suspect]
     Dosage: 80 MG
  7. VINCRISTINE SULFATE [Suspect]
     Dosage: 2 MG
  8. MESNA [Suspect]
     Dosage: 4040 MG
  9. CYCLOPHOSPHAMIDE [Suspect]
     Dosage: 2040 MG
  10. IFOSFAMIDE [Suspect]
     Dosage: 8080 MG
  11. RITUXIMAB (MOAB C2B8 ANTI CD20, CHIMERIC) [Suspect]
     Dosage: 745 MG

REACTIONS (2)
  - MYELODYSPLASTIC SYNDROME [None]
  - ACUTE MYELOID LEUKAEMIA [None]
